FAERS Safety Report 5943254-2 (Version None)
Quarter: 2008Q4

REPORT INFORMATION
  Report Type: 
  Country: None (occurrence: None)
  Receive Date: 20081105
  Receipt Date: 20081105
  Transmission Date: 20090506
  Serious: No
  Sender: FDA-Public Use
  Company Number: None

PATIENT
  Sex: Male
  Weight: 80.7403 kg

DRUGS (2)
  1. VANCOMYCIN [Suspect]
     Indication: OSTEOMYELITIS
     Dosage: 750 MG Q12H IV
     Route: 042
     Dates: start: 20081016, end: 20081104
  2. ZOSYN [Suspect]
     Indication: OSTEOMYELITIS
     Dosage: 3.375 GM Q6H IV
     Route: 042
     Dates: start: 20081016, end: 20081104

REACTIONS (1)
  - RASH [None]
